FAERS Safety Report 4418385-9 (Version None)
Quarter: 2004Q3

REPORT INFORMATION
  Report Type: 
  Country: None (occurrence: None)
  Receive Date: 20040809
  Receipt Date: 20040409
  Transmission Date: 20050211
  Serious: No
  Sender: FDA-Public Use
  Company Number: US-GLAXOSMITHKLINE-A0506498A

PATIENT
  Age: 30 Year
  Sex: Female

DRUGS (8)
  1. PAXIL [Suspect]
     Dosage: 25MG PER DAY
     Route: 048
     Dates: start: 20040409
  2. DIGOXIN [Concomitant]
  3. NEXIUM [Concomitant]
  4. CLARINEX [Concomitant]
  5. ORTHO-NOVUM [Concomitant]
  6. PHENERGAN [Concomitant]
  7. COMPAZINE [Concomitant]
  8. BENTYL [Concomitant]

REACTIONS (2)
  - DIARRHOEA [None]
  - DIZZINESS [None]
